FAERS Safety Report 14541777 (Version 2)
Quarter: 2018Q1

REPORT INFORMATION
  Report Type: Spontaneous
  Country: DE (occurrence: DE)
  Receive Date: 20180216
  Receipt Date: 20180226
  Transmission Date: 20180509
  Serious: Yes (Life-Threatening, Hospitalization, Other)
  Sender: FDA-Public Use
  Company Number: DE-BRISTOL-MYERS SQUIBB COMPANY-BMS-2018-007503

PATIENT
  Age: 55 Year
  Sex: Female
  Weight: 56 kg

DRUGS (1)
  1. OPDIVO [Suspect]
     Active Substance: NIVOLUMAB
     Indication: NON-SMALL CELL LUNG CANCER
     Dosage: 3 MG/KG, UNK
     Route: 042
     Dates: start: 20170223

REACTIONS (4)
  - Bronchitis [Unknown]
  - Bronchitis chronic [Unknown]
  - Staphylococcal infection [Unknown]
  - Pneumonitis [Recovered/Resolved]

NARRATIVE: CASE EVENT DATE: 20170322
